FAERS Safety Report 7543948-1 (Version None)
Quarter: 2011Q2

REPORT INFORMATION
  Report Type: 
  Country: None (occurrence: None)
  Receive Date: 20110613
  Receipt Date: 20110606
  Transmission Date: 20111010
  Serious: Yes (Life-Threatening, Hospitalization, Disabling)
  Sender: FDA-Public Use
  Company Number: PHHO2011GB03468

PATIENT
  Sex: Female
  Weight: 18 kg

DRUGS (14)
  1. FOLIC ACID [Concomitant]
  2. AMILORIDE HYDROCHLORIDE [Concomitant]
  3. COLECALCIFEROL [Concomitant]
  4. COTRIM [Concomitant]
  5. GABAPENTIN [Concomitant]
  6. STEROIDS NOS [Concomitant]
  7. OMEPRAZOLE [Concomitant]
  8. OXYCODONE [Concomitant]
  9. MAGNESIUM GLYCEROPHOSPHATE [Concomitant]
  10. SANDO K [Concomitant]
  11. FLOXACILLIN SODIUM [Concomitant]
  12. DEXAMETHASONE [Concomitant]
  13. GLEEVEC [Suspect]
     Indication: ACUTE LYMPHOCYTIC LEUKAEMIA
     Dosage: UNK
     Route: 048
     Dates: start: 20100505, end: 20110103
  14. DOXORUBICIN HCL [Concomitant]

REACTIONS (5)
  - LARGE INTESTINE PERFORATION [None]
  - CARDIAC ARREST [None]
  - PNEUMATOSIS INTESTINALIS [None]
  - ABDOMINAL DISTENSION [None]
  - ROTAVIRUS INFECTION [None]
